FAERS Safety Report 9826181 (Version 2)
Quarter: 2014Q1

REPORT INFORMATION
  Report Type: Spontaneous
  Country: US (occurrence: None)
  Receive Date: 20140115
  Receipt Date: 20140304
  Transmission Date: 20141002
  Serious: Yes (Other)
  Sender: FDA-Public Use
  Company Number: 2013-US-005118

PATIENT
  Age: 50 Year
  Sex: Male

DRUGS (1)
  1. XYREM (SODIUM OXYBATE) ORAL SOLUTION, 500MG/ML [Suspect]
     Indication: NARCOLEPSY
     Route: 048
     Dates: start: 200602, end: 2006

REACTIONS (4)
  - Diabetes mellitus [None]
  - Feeling abnormal [None]
  - Narcolepsy [None]
  - Condition aggravated [None]
